FAERS Safety Report 5397228-3 (Version None)
Quarter: 2007Q3

REPORT INFORMATION
  Report Type: 
  Country: None (occurrence: None)
  Receive Date: 20070725
  Receipt Date: 20070715
  Transmission Date: 20080115
  Serious: Yes (Hospitalization, Other)
  Sender: FDA-Public Use
  Company Number: IL-ABBOTT-07P-082-0374661-01

PATIENT
  Sex: Male
  Weight: 49 kg

DRUGS (3)
  1. KALETRA [Suspect]
     Indication: HIV INFECTION
     Route: 048
     Dates: start: 20051128
  2. TENOFOVIR [Concomitant]
     Indication: HIV INFECTION
     Route: 048
     Dates: start: 20050101
  3. LAMIVUDINE [Concomitant]
     Indication: HIV INFECTION
     Route: 048
     Dates: start: 20050101

REACTIONS (8)
  - ACTIVATED PARTIAL THROMBOPLASTIN TIME ABNORMAL [None]
  - BLOOD FIBRINOGEN ABNORMAL [None]
  - BLOOD LACTATE DEHYDROGENASE ABNORMAL [None]
  - BURKITT'S LYMPHOMA [None]
  - HEPATIC NEOPLASM MALIGNANT [None]
  - HEPATOMEGALY [None]
  - PLEURAL EFFUSION [None]
  - PNEUMONIA BACTERIAL [None]
